FAERS Safety Report 19310073 (Version 3)
Quarter: 2021Q4

REPORT INFORMATION
  Report Type: Report from Study
  Country: FR (occurrence: FR)
  Receive Date: 20210526
  Receipt Date: 20211014
  Transmission Date: 20220303
  Serious: Yes (Hospitalization, Other)
  Sender: FDA-Public Use
  Company Number: FR-BRISTOL-MYERS SQUIBB COMPANY-BMS-2021-028610

PATIENT
  Age: 52 Year
  Sex: Male

DRUGS (4)
  1. NIVOLUMAB [Suspect]
     Active Substance: NIVOLUMAB
     Indication: Renal neoplasm
     Dosage: 264 MILLIGRAM, Q3WK
     Route: 065
     Dates: start: 20201222
  2. NIVOLUMAB [Suspect]
     Active Substance: NIVOLUMAB
     Dosage: 240 MILLIGRAM, Q3WK
     Route: 065
     Dates: start: 20201222, end: 20210420
  3. IPILIMUMAB [Suspect]
     Active Substance: IPILIMUMAB
     Indication: Renal neoplasm
     Dosage: 88 MILLIGRAM
     Route: 065
     Dates: start: 20201222
  4. IPILIMUMAB [Suspect]
     Active Substance: IPILIMUMAB
     Dosage: 50 MILLIGRAM, Q3WK
     Route: 065
     Dates: start: 20201222, end: 20210420

REACTIONS (4)
  - Hepatitis [Recovered/Resolved]
  - Hepatic cytolysis [Recovered/Resolved]
  - Fatigue [Unknown]
  - Pruritus [Recovered/Resolved]

NARRATIVE: CASE EVENT DATE: 20210112
